FAERS Safety Report 5115449-1 (Version None)
Quarter: 2006Q3

REPORT INFORMATION
  Report Type: 
  Country: None (occurrence: None)
  Receive Date: 20060922
  Receipt Date: 20060908
  Transmission Date: 20061208
  Serious: Yes (Hospitalization)
  Sender: FDA-Public Use
  Company Number: 02100-JPN-06-0426

PATIENT
  Age: 59 Year
  Sex: Male

DRUGS (1)
  1. CILOSTAZOL [Suspect]
     Indication: CEREBRAL INFARCTION
     Dosage: 200 MG
     Route: 048

REACTIONS (4)
  - ABDOMINAL PAIN [None]
  - CEREBRAL INFARCTION [None]
  - DIARRHOEA [None]
  - ILEAL ULCER [None]
